FAERS Safety Report 7841452-4 (Version None)
Quarter: 2011Q4

REPORT INFORMATION
  Report Type: 
  Country: None (occurrence: None)
  Receive Date: 20111025
  Receipt Date: 20111015
  Transmission Date: 20120403
  Serious: Yes (Other)
  Sender: FDA-Public Use
  Company Number: CA-JNJFOC-20111007955

PATIENT
  Sex: Female
  Weight: 75 kg

DRUGS (8)
  1. IMURAN [Concomitant]
     Route: 065
  2. SINGULAIR [Concomitant]
     Route: 065
  3. FLONASE [Concomitant]
     Route: 065
  4. REMICADE [Suspect]
     Indication: COLITIS ULCERATIVE
     Route: 042
     Dates: start: 20101106
  5. ADVAIR DISKUS 100/50 [Concomitant]
     Route: 065
  6. A MULTIVITAMIN [Concomitant]
     Route: 065
  7. NEXIUM [Concomitant]
     Route: 065
  8. REACTINE [Concomitant]
     Route: 065

REACTIONS (3)
  - SKIN LESION [None]
  - ABSCESS LIMB [None]
  - RASH [None]
